FAERS Safety Report 7849326 (Version 6)
Quarter: 2012Q4

REPORT INFORMATION
  Report Type: 
  Country: JP (occurrence: JP)
  Receive Date: 20110310
  Receipt Date: 20121227
  Transmission Date: 20130627
  Serious: Yes (Death, Hospitalization, Other)
  Sender: FDA-Public Use
  Company Number: JP-BAYER-201012455BYL

PATIENT
  Age: 71 Year
  Sex: Male
  Weight: 48 kg

DRUGS (4)
  1. NEXAVAR [Suspect]
     Indication: CARCINOMA HEPATOCELLULAR
     Dosage: 400 mg, BID
     Route: 048
     Dates: start: 20100508, end: 20100520
  2. NEXAVAR [Suspect]
     Indication: CARCINOMA HEPATOCELLULAR
     Dosage: 400 mg, QD
     Route: 048
     Dates: start: 20100610, end: 20110203
  3. URSO [Concomitant]
     Indication: CHRONIC HEPATITIS C
     Dosage: 600 mg, QD
     Route: 048
  4. AMLODIPINE [Concomitant]
     Indication: HYPERTENSION
     Dosage: 5 mg, QD
     Route: 048

REACTIONS (9)
  - Hepatic failure [Fatal]
  - Hepatic infarction [Not Recovered/Not Resolved]
  - Diarrhoea [Not Recovered/Not Resolved]
  - Pancreatitis acute [Recovered/Resolved]
  - Haemorrhoidal haemorrhage [Recovered/Resolved]
  - Melaena [Recovered/Resolved]
  - Hepatic infarction [Not Recovered/Not Resolved]
  - Encephalopathy [Recovered/Resolved]
  - Decreased appetite [Recovered/Resolved]
